FAERS Safety Report 9286606 (Version 1)
Quarter: 2013Q2

REPORT INFORMATION
  Report Type: Spontaneous
  Country: HR (occurrence: HR)
  Receive Date: 20130513
  Receipt Date: 20130513
  Transmission Date: 20140414
  Serious: Yes (Death, Other)
  Sender: FDA-Public Use
  Company Number: PHHY2013HR047091

PATIENT
  Age: 18 Year
  Sex: Male

DRUGS (2)
  1. TRAMADOL [Suspect]
  2. ANALGESICS [Concomitant]

REACTIONS (7)
  - Toxicity to various agents [Fatal]
  - Pulmonary oedema [Unknown]
  - Brain oedema [Unknown]
  - Muscle strain [Unknown]
  - Haematoma [Unknown]
  - Contusion [Unknown]
  - Drug level increased [Unknown]
